FAERS Safety Report 24407427 (Version 1)
Quarter: 2024Q4

REPORT INFORMATION
  Report Type: Spontaneous
  Country: US (occurrence: US)
  Receive Date: 20241007
  Receipt Date: 20241007
  Transmission Date: 20250114
  Serious: No
  Sender: Harrow Health
  Company Number: US-IMP-2024000765

PATIENT
  Age: 87 Year
  Sex: Female

DRUGS (2)
  1. POLYVINYL ALCOHOL\POVIDONE [Suspect]
     Active Substance: POLYVINYL ALCOHOL\POVIDONE
     Indication: Corneal dystrophy
     Dosage: SOMETIMES 4 TIMES A DAY
     Route: 065
  2. PROLENSA [Concomitant]
     Active Substance: BROMFENAC SODIUM
     Indication: Product used for unknown indication
     Route: 065

REACTIONS (3)
  - Product delivery mechanism issue [Unknown]
  - Expired product administered [Unknown]
  - Off label use [Unknown]
